FAERS Safety Report 20307723 (Version 1)
Quarter: 2022Q1

REPORT INFORMATION
  Report Type: Spontaneous
  Country: NL (occurrence: NL)
  Receive Date: 20220107
  Receipt Date: 20220107
  Transmission Date: 20220423
  Serious: Yes (Other)
  Sender: FDA-Public Use
  Company Number: None

PATIENT
  Sex: Male
  Weight: 78 kg

DRUGS (2)
  1. LOSARTAN [Suspect]
     Active Substance: LOSARTAN
     Indication: Hypertension
     Dosage: 100 MILLIGRAM DAILY; LOSARTAN TABLET FO 100MG / BRAND NAME NOT SPECIFIED
     Dates: start: 20211030, end: 20211126
  2. SIMVASTATIN [Concomitant]
     Active Substance: SIMVASTATIN
     Dosage: 20 MG; THERAPY START AND END DATE: ASKU; SIMVASTATINE TABLET FO 20MG / BRAND NAME NOT SPECIFIED

REACTIONS (1)
  - Bradycardia [Recovered/Resolved]
